FAERS Safety Report 7517035-2 (Version None)
Quarter: 2011Q2

REPORT INFORMATION
  Report Type: 
  Country: None (occurrence: None)
  Receive Date: 20110601
  Receipt Date: 20110518
  Transmission Date: 20111010
  Serious: Yes (Other)
  Sender: FDA-Public Use
  Company Number: US-JNJFOC-20110410626

PATIENT
  Sex: Female
  Weight: 70.76 kg

DRUGS (2)
  1. METHOTREXATE [Concomitant]
     Route: 048
  2. REMICADE [Suspect]
     Indication: RHEUMATOID ARTHRITIS
     Route: 042
     Dates: start: 20110316

REACTIONS (6)
  - ABDOMINAL PAIN UPPER [None]
  - CHOLELITHIASIS [None]
  - DIARRHOEA [None]
  - THERAPEUTIC RESPONSE DECREASED [None]
  - HIATUS HERNIA [None]
  - GASTROOESOPHAGEAL REFLUX DISEASE [None]
